FAERS Safety Report 5278209-7 (Version None)
Quarter: 2007Q1

REPORT INFORMATION
  Report Type: 
  Country: None (occurrence: None)
  Receive Date: 20070328
  Receipt Date: 20070323
  Transmission Date: 20070707
  Serious: Yes (Death, Other)
  Sender: FDA-Public Use
  Company Number: PHEH2007US03042

PATIENT
  Age: 89 Year
  Sex: Female

DRUGS (5)
  1. AREDIA [Suspect]
     Indication: BREAST CANCER METASTATIC
     Dosage: 60 MG Q 28 DAYS
     Dates: start: 20010828, end: 20011113
  2. ZOMETA [Suspect]
     Indication: BREAST CANCER METASTATIC
     Dosage: 4 MG Q 28 DAYS
     Dates: start: 20020115, end: 20021101
  3. MEGACE [Concomitant]
     Indication: BREAST CANCER
     Dosage: 40 MG, QID
     Dates: start: 20011001, end: 20020906
  4. FASLODEX [Concomitant]
     Indication: BREAST CANCER
     Dosage: 250 MG, UNK
     Dates: start: 20020901
  5. DYAZIDE [Concomitant]
     Indication: HYPERTENSION

REACTIONS (6)
  - BLOOD CHLORIDE INCREASED [None]
  - BLOOD CREATINE INCREASED [None]
  - BLOOD UREA INCREASED [None]
  - DEATH [None]
  - DIALYSIS [None]
  - RENAL FAILURE [None]
